FAERS Safety Report 18881958 (Version 1)
Quarter: 2021Q1

REPORT INFORMATION
  Report Type: Spontaneous
  Country: US (occurrence: US)
  Receive Date: 20210212
  Receipt Date: 20210212
  Transmission Date: 20210420
  Serious: No
  Sender: FDA-Public Use
  Company Number: US-TEVA-2021-US-1878455

PATIENT
  Sex: Female

DRUGS (1)
  1. RISEDRONATE SODIUM TEVA [Suspect]
     Active Substance: RISEDRONATE SODIUM
     Indication: OSTEOPOROSIS POSTMENOPAUSAL
     Dosage: 1 PILL EACH MONTH
     Dates: start: 2021

REACTIONS (5)
  - Pyrexia [Unknown]
  - Pain [Unknown]
  - Decreased appetite [Unknown]
  - Diarrhoea [Unknown]
  - Drug ineffective [Unknown]

NARRATIVE: CASE EVENT DATE: 2021
